FAERS Safety Report 9882717 (Version 1)
Quarter: 2014Q1

REPORT INFORMATION
  Report Type: Spontaneous
  Country: SA (occurrence: SA)
  Receive Date: 20140207
  Receipt Date: 20140207
  Transmission Date: 20141002
  Serious: Yes (Other)
  Sender: FDA-Public Use
  Company Number: PHHY2014SA014232

PATIENT
  Age: 28 Year
  Sex: Female

DRUGS (2)
  1. CICLOSPORIN [Suspect]
     Indication: RENAL TRANSPLANT
     Dosage: 4.5 MG/KG, PER DAY
  2. PREDNISOLONE [Suspect]

REACTIONS (4)
  - Foetal distress syndrome [Unknown]
  - Foetal growth restriction [Unknown]
  - Premature delivery [Unknown]
  - Maternal exposure during pregnancy [Unknown]
